FAERS Safety Report 23812807 (Version 5)
Quarter: 2025Q2

REPORT INFORMATION
  Report Type: Spontaneous
  Country: CA (occurrence: CA)
  Receive Date: 20240503
  Receipt Date: 20250522
  Transmission Date: 20250716
  Serious: Yes (Other)
  Sender: CELLTRION
  Company Number: CA-CELLTRION INC.-2024CA010152

PATIENT

DRUGS (5)
  1. INFLECTRA [Suspect]
     Active Substance: INFLIXIMAB-DYYB
     Indication: Crohn^s disease
     Route: 042
     Dates: start: 20240227
  2. INFLECTRA [Suspect]
     Active Substance: INFLIXIMAB-DYYB
     Route: 042
     Dates: start: 20240409
  3. INFLECTRA [Suspect]
     Active Substance: INFLIXIMAB-DYYB
     Route: 042
     Dates: start: 20240521
  4. INFLECTRA [Suspect]
     Active Substance: INFLIXIMAB-DYYB
     Route: 042
     Dates: start: 20250401
  5. INFLECTRA [Suspect]
     Active Substance: INFLIXIMAB-DYYB
     Route: 042
     Dates: start: 20250513

REACTIONS (3)
  - Blood pressure increased [Unknown]
  - Condition aggravated [Not Recovered/Not Resolved]
  - Off label use [Unknown]

NARRATIVE: CASE EVENT DATE: 20240101
